FAERS Safety Report 9527028 (Version 1)
Quarter: 2013Q3

REPORT INFORMATION
  Report Type: Spontaneous
  Country: FR (occurrence: FR)
  Receive Date: 20130916
  Receipt Date: 20130916
  Transmission Date: 20140515
  Serious: Yes (Life-Threatening, Hospitalization)
  Sender: FDA-Public Use
  Company Number: FR-PFIZER INC-2013263642

PATIENT
  Age: 64 Year
  Sex: Female

DRUGS (2)
  1. CADUET [Suspect]
     Dosage: UNK
     Route: 048
     Dates: start: 20101213, end: 20101221
  2. BIPRETERAX [Suspect]
     Dosage: 4 MG/1.25 MG, 1X/DAY
     Route: 048
     Dates: start: 20101213, end: 20101221

REACTIONS (2)
  - Hypokalaemia [Recovered/Resolved]
  - Hyponatraemia [Recovered/Resolved]
